FAERS Safety Report 4373296-2 (Version None)
Quarter: 2004Q2

REPORT INFORMATION
  Report Type: 
  Country: None (occurrence: None)
  Receive Date: 20040603
  Receipt Date: 20040518
  Transmission Date: 20050107
  Serious: Yes (Death)
  Sender: FDA-Public Use
  Company Number: 701532

PATIENT
  Age: 66 Year
  Sex: Male

DRUGS (3)
  1. AMEVIVE [Suspect]
     Indication: PSORIASIS
     Dates: start: 20030101, end: 20030101
  2. HYZAAR [Concomitant]
  3. CARDURA [Concomitant]

REACTIONS (1)
  - DEATH [None]
